FAERS Safety Report 9768564 (Version 3)
Quarter: 2014Q2

REPORT INFORMATION
  Report Type: Report from Study
  Country: AR (occurrence: AR)
  Receive Date: 20131218
  Receipt Date: 20140620
  Transmission Date: 20141212
  Serious: Yes (Hospitalization, Other)
  Sender: FDA-Public Use
  Company Number: AR-ROCHE-1320660

PATIENT
  Age: 61 Year
  Sex: Male

DRUGS (4)
  1. RANIBIZUMAB [Suspect]
     Indication: ARTERIAL HAEMORRHAGE
     Route: 050
     Dates: start: 201210
  2. RANIBIZUMAB [Suspect]
     Route: 050
     Dates: start: 201302
  3. RANIBIZUMAB [Suspect]
     Route: 050
     Dates: start: 20130905
  4. APO-ATORVASTATIN [Concomitant]
     Dosage: 1DF/DAY
     Route: 065

REACTIONS (6)
  - Blood pressure increased [Recovered/Resolved]
  - Eye haemorrhage [Not Recovered/Not Resolved]
  - Blindness [Not Recovered/Not Resolved]
  - Vitreous haemorrhage [Not Recovered/Not Resolved]
  - Visual impairment [Not Recovered/Not Resolved]
  - Drug ineffective [Unknown]
